FAERS Safety Report 20458248 (Version 1)
Quarter: 2022Q1

REPORT INFORMATION
  Report Type: Spontaneous
  Country: US (occurrence: US)
  Receive Date: 20220211
  Receipt Date: 20220211
  Transmission Date: 20220423
  Serious: Yes (Other)
  Sender: FDA-Public Use
  Company Number: US-JNJFOC-20210840600

PATIENT
  Age: 29 Year
  Sex: Female
  Weight: 102.16 kg

DRUGS (2)
  1. STELARA [Suspect]
     Active Substance: USTEKINUMAB
     Indication: Colitis ulcerative
     Route: 042
     Dates: start: 20210818, end: 20210818
  2. STELARA [Suspect]
     Active Substance: USTEKINUMAB
     Route: 042
     Dates: start: 20210818, end: 20210818

REACTIONS (4)
  - Throat tightness [Recovering/Resolving]
  - Infusion related reaction [Recovered/Resolved]
  - Drug intolerance [Recovered/Resolved]
  - Hypersensitivity [Recovered/Resolved]

NARRATIVE: CASE EVENT DATE: 20210818
